FAERS Safety Report 4835618-5 (Version None)
Quarter: 2005Q4

REPORT INFORMATION
  Report Type: 
  Country: None (occurrence: None)
  Receive Date: 20051121
  Receipt Date: 20051107
  Transmission Date: 20060501
  Serious: Yes (Death, Hospitalization)
  Sender: FDA-Public Use
  Company Number: WAES 0510DEU00067

PATIENT
  Age: 84 Year
  Sex: Female

DRUGS (3)
  1. COZAAR [Suspect]
     Indication: ESSENTIAL HYPERTENSION
     Dosage: PO
     Route: 048
     Dates: start: 20040616, end: 20050721
  2. THERAPY UNSPECIFIED [Concomitant]
  3. DIURETIC [Concomitant]

REACTIONS (1)
  - CARDIAC FAILURE [None]
